FAERS Safety Report 6810195-8 (Version None)
Quarter: 2010Q2

REPORT INFORMATION
  Report Type: 
  Country: None (occurrence: None)
  Receive Date: 20100630
  Receipt Date: 20100622
  Transmission Date: 20101027
  Serious: Yes (Hospitalization)
  Sender: FDA-Public Use
  Company Number: JP-MERCK-1005USA00905

PATIENT
  Age: 83 Year
  Sex: Female

DRUGS (3)
  1. JANUVIA [Suspect]
     Indication: TYPE 2 DIABETES MELLITUS
     Route: 048
     Dates: start: 20100331, end: 20100414
  2. GLYBURIDE [Concomitant]
     Route: 065
     Dates: start: 19990801, end: 20090401
  3. GLYBURIDE [Concomitant]
     Route: 065
     Dates: start: 19990401

REACTIONS (1)
  - CARDIAC FAILURE CONGESTIVE [None]
